FAERS Safety Report 17956479 (Version 1)
Quarter: 2020Q2

REPORT INFORMATION
  Report Type: Spontaneous
  Country: US (occurrence: US)
  Receive Date: 20200627
  Receipt Date: 20200627
  Transmission Date: 20200714
  Serious: Yes (Other)
  Sender: FDA-Public Use
  Company Number: None

PATIENT
  Age: 77 Year
  Sex: Female
  Weight: 63 kg

DRUGS (11)
  1. VITAMIN C [Concomitant]
     Active Substance: ASCORBIC ACID
  2. LEVOFLOXACIN. [Suspect]
     Active Substance: LEVOFLOXACIN
     Indication: URINARY TRACT INFECTION
     Dosage: ?          QUANTITY:7 TABLET(S);?
     Route: 048
     Dates: start: 20200606, end: 20200607
  3. MULTI VITAMIN [Concomitant]
     Active Substance: VITAMINS
  4. XALATAN [Concomitant]
     Active Substance: LATANOPROST
  5. METOPROLOL. [Concomitant]
     Active Substance: METOPROLOL
  6. MULTI MINERAL [Concomitant]
  7. MAGNESIUM [Concomitant]
     Active Substance: MAGNESIUM
  8. VITAMIN D3 [Concomitant]
     Active Substance: CHOLECALCIFEROL
  9. BABY ASPIRIN [Concomitant]
     Active Substance: ASPIRIN
  10. OREGANO OIL [Concomitant]
  11. BILBERRY [Concomitant]
     Active Substance: BILBERRY

REACTIONS (2)
  - Therapy cessation [None]
  - Tendonitis [None]

NARRATIVE: CASE EVENT DATE: 20200607
